FAERS Safety Report 10420225 (Version 1)
Quarter: 2014Q3

REPORT INFORMATION
  Report Type: Spontaneous
  Country: US (occurrence: None)
  Receive Date: 20140701
  Receipt Date: 20140701
  Transmission Date: 20150326
  Serious: No
  Sender: FDA-Public Use
  Company Number: 100006019

PATIENT
  Age: 93 Year
  Sex: Male

DRUGS (3)
  1. PAIN MEDICATION (NOS) (PAIN MEDICATION (NOS) (PAIN MEDICATION (NOS)) [Concomitant]
  2. LINZESS [Suspect]
     Active Substance: LINACLOTIDE
     Indication: CONSTIPATION
     Dosage: 290 MCG (290 MG, 1 IN 1 D), ORAL
     Route: 048
     Dates: start: 201403, end: 201403
  3. LINZESS [Suspect]
     Active Substance: LINACLOTIDE
     Indication: CONSTIPATION
     Dosage: 145 MCG (145 MG, 1 IN 1 D), ORAL
     Route: 048
     Dates: start: 201403, end: 201403

REACTIONS (3)
  - Drug ineffective [None]
  - Diarrhoea [None]
  - Flatulence [None]

NARRATIVE: CASE EVENT DATE: 201403
